FAERS Safety Report 7915546 (Version 2)
Quarter: 2012Q4

REPORT INFORMATION
  Report Type: Spontaneous
  Country: GB (occurrence: None)
  Receive Date: 20110405
  Receipt Date: 20120816
  Transmission Date: 20130627
  Serious: Yes (Hospitalization, Disabling)
  Sender: FDA-Public Use
  Company Number: 2011AP000504

PATIENT
  Age: 66 Year
  Sex: Male

DRUGS (10)
  1. LEFLUNOMIDE [Suspect]
     Indication: PRODUCT USED FOR UNKNOWN INDICATION
  2. ALENDRONATE SODIUM [Concomitant]
  3. ACETYLSALICYLIC ACID (ACETYLSALICYLIC ACID) [Concomitant]
  4. CARBOCYSTEINE [Concomitant]
  5. LEVOTHYROXINE (LEVOTHYROXINE) [Concomitant]
  6. METHOTREXATE [Concomitant]
  7. PREDNISOLONE [Concomitant]
  8. SIMVASTATIN [Concomitant]
  9. THIAMINE (THIAMINE) [Concomitant]
  10. VITAMIN B NOS (VITAMIN B NOS) [Concomitant]

REACTIONS (1)
  - PROGRESSIVE MULTIFOCAL LEUKOENCEPHALOPATHY [None]
